FAERS Safety Report 16140931 (Version 2)
Quarter: 2019Q3

REPORT INFORMATION
  Report Type: Spontaneous
  Country: TR (occurrence: TR)
  Receive Date: 20190401
  Receipt Date: 20190724
  Transmission Date: 20191004
  Serious: Yes (Hospitalization, Other)
  Sender: FDA-Public Use
  Company Number: TR-ASTELLAS-2019US013299

PATIENT
  Age: 57 Year
  Sex: Male

DRUGS (4)
  1. MYCOPHENOLATE MOFETIL. [Suspect]
     Active Substance: MYCOPHENOLATE MOFETIL
     Indication: RENAL TRANSPLANT
     Route: 065
     Dates: start: 201111, end: 201201
  2. TACROLIMUS. [Suspect]
     Active Substance: TACROLIMUS
     Indication: RENAL TRANSPLANT
     Route: 065
     Dates: start: 201111, end: 201201
  3. TACROLIMUS. [Suspect]
     Active Substance: TACROLIMUS
     Dosage: UNK UNK, UNKNOWN FREQ. (DOSE DECREASED)
     Route: 065
     Dates: start: 201201
  4. PREDNISONE. [Concomitant]
     Active Substance: PREDNISONE
     Indication: RENAL TRANSPLANT
     Route: 065
     Dates: start: 201111

REACTIONS (3)
  - Polyomavirus-associated nephropathy [Unknown]
  - Transplant failure [Unknown]
  - Cutaneous blastomycosis [Recovered/Resolved]

NARRATIVE: CASE EVENT DATE: 2012
